FAERS Safety Report 12451392 (Version 3)
Quarter: 2016Q3

REPORT INFORMATION
  Report Type: Spontaneous
  Country: US (occurrence: US)
  Receive Date: 20160609
  Receipt Date: 20160719
  Transmission Date: 20161109
  Serious: Yes (Hospitalization, Other)
  Sender: FDA-Public Use
  Company Number: US-PFIZER INC-2016291514

PATIENT
  Age: 65 Year
  Sex: Female
  Weight: 83.46 kg

DRUGS (21)
  1. CHANTIX [Suspect]
     Active Substance: VARENICLINE TARTRATE
     Dosage: 7 MG, 1X/DAY
     Dates: start: 2016, end: 2016
  2. TOPIRAMATE. [Concomitant]
     Active Substance: TOPIRAMATE
     Indication: SLEEP DISORDER
     Dosage: 50 MG, TABLET, AT BED TIME
     Dates: start: 20160228
  3. ASPIRIN. [Concomitant]
     Active Substance: ASPIRIN
     Dosage: 81 MG, DAILY
     Dates: start: 20130101
  4. FENTANYL. [Concomitant]
     Active Substance: FENTANYL
     Dosage: 50 MG, UNK
     Dates: start: 20130115
  5. SIMVASTATIN. [Concomitant]
     Active Substance: SIMVASTATIN
     Dosage: 40 MG, UNK
     Dates: start: 20140101
  6. DILAUDID [Concomitant]
     Active Substance: HYDROMORPHONE HYDROCHLORIDE
     Indication: PAIN
     Dosage: 4 MG, EVERY SIX HOUR AS NEEDED
  7. METOPROLOL SUCCINATE. [Concomitant]
     Active Substance: METOPROLOL SUCCINATE
     Dosage: 50 MG, UNK
     Dates: start: 20130101
  8. DULOXETINE HYDROCHLORIDE. [Concomitant]
     Active Substance: DULOXETINE HYDROCHLORIDE
     Dosage: UNK
     Dates: start: 20140101
  9. HYDROMORPHONE HYDROCHLORIDE. [Concomitant]
     Active Substance: HYDROMORPHONE HYDROCHLORIDE
     Dosage: UNK
     Dates: start: 20130115
  10. CELEBREX [Suspect]
     Active Substance: CELECOXIB
     Dosage: 100 MG, 1X/DAY
     Route: 048
     Dates: start: 20160210, end: 20160210
  11. ONDANSETRON HCL [Concomitant]
     Active Substance: ONDANSETRON HYDROCHLORIDE
     Indication: ABDOMINAL DISCOMFORT
     Dosage: 4 MG, TABLET, EVERY FOUR HOURS AS NEEDED
     Route: 048
     Dates: start: 20140101
  12. CYMBALTA [Concomitant]
     Active Substance: DULOXETINE HYDROCHLORIDE
     Dosage: 60 MG, UNK
     Dates: start: 20130101
  13. METOPROLOL. [Concomitant]
     Active Substance: METOPROLOL
     Dosage: UNK
     Dates: start: 20130101
  14. CHANTIX [Suspect]
     Active Substance: VARENICLINE TARTRATE
     Dosage: 14 MG, 2X/DAY
     Dates: start: 2016, end: 2016
  15. LYRICA [Concomitant]
     Active Substance: PREGABALIN
     Indication: FIBROMYALGIA
     Dosage: 300 MG, 2X/DAY
     Route: 048
     Dates: start: 20160101, end: 2016
  16. CHANTIX [Suspect]
     Active Substance: VARENICLINE TARTRATE
     Dosage: 1 MG, 2X/DAY (ONE IN THE MORNING AND ONE IN THE EVENING)
     Dates: start: 20160301, end: 20160311
  17. LYRICA [Concomitant]
     Active Substance: PREGABALIN
     Dosage: 200 MG, UNK
     Route: 048
     Dates: start: 2016, end: 20160228
  18. FLEXERIL [Concomitant]
     Active Substance: CYCLOBENZAPRINE HYDROCHLORIDE
     Dosage: 10 MG, UNK
     Dates: start: 20130101
  19. CHANTIX [Suspect]
     Active Substance: VARENICLINE TARTRATE
     Indication: SMOKING CESSATION THERAPY
     Dosage: 21 MG, 1X/DAY
     Dates: start: 20160226, end: 2016
  20. CELEBREX [Suspect]
     Active Substance: CELECOXIB
     Indication: ARTHRITIS
     Dosage: 200 MG, EVERY MORNING
     Route: 048
  21. CELEBREX [Suspect]
     Active Substance: CELECOXIB
     Dosage: 300 MG, UNK
     Route: 048

REACTIONS (6)
  - Loss of consciousness [Not Recovered/Not Resolved]
  - Lower limb fracture [Not Recovered/Not Resolved]
  - Overdose [Unknown]
  - Muscle rupture [Not Recovered/Not Resolved]
  - Fall [Not Recovered/Not Resolved]
  - Laceration [Not Recovered/Not Resolved]

NARRATIVE: CASE EVENT DATE: 20160226
